FAERS Safety Report 10192990 (Version 2)
Quarter: 2014Q3

REPORT INFORMATION
  Report Type: Spontaneous
  Country: FR (occurrence: FR)
  Receive Date: 20140524
  Receipt Date: 20140826
  Transmission Date: 20150326
  Serious: Yes (Hospitalization)
  Sender: FDA-Public Use
  Company Number: PHHY2014FR062424

PATIENT
  Age: 78 Year
  Sex: Female

DRUGS (6)
  1. EUPHYLLINE [Suspect]
     Active Substance: THEOPHYLLINE
     Dosage: 1 DF, BID
     Route: 048
     Dates: end: 201403
  2. LIORESAL [Suspect]
     Active Substance: BACLOFEN
     Dosage: 1 DF, TID
     Route: 048
  3. LAROXYL [Suspect]
     Active Substance: AMITRIPTYLINE
     Dosage: 10 GTT, QD
     Route: 048
     Dates: end: 201403
  4. TEMESTA [Suspect]
     Active Substance: LORAZEPAM
     Dosage: 1 MG, QD
     Route: 048
  5. TEGRETOL [Suspect]
     Active Substance: CARBAMAZEPINE
     Dosage: 400 MG, BID
     Route: 048
  6. DUROGESIC [Suspect]
     Active Substance: FENTANYL
     Dosage: 1 DF, Q72H (12 UG/HOUR(2.1 MG/5.25 CMMEQ2)
     Route: 062
     Dates: end: 201403

REACTIONS (6)
  - Renal failure [Recovered/Resolved]
  - Fall [Recovered/Resolved]
  - Hypokalaemia [Recovered/Resolved]
  - Hyponatraemia [Recovered/Resolved]
  - Fatigue [Recovered/Resolved]
  - Decreased appetite [Recovered/Resolved]

NARRATIVE: CASE EVENT DATE: 20140228
